FAERS Safety Report 20305291 (Version 1)
Quarter: 2022Q1

REPORT INFORMATION
  Report Type: Spontaneous
  Country: US (occurrence: US)
  Receive Date: 20220106
  Receipt Date: 20220106
  Transmission Date: 20220423
  Serious: No
  Sender: FDA-Public Use
  Company Number: US-PFIZER INC-2021575590

PATIENT
  Age: 67 Year
  Sex: Male

DRUGS (3)
  1. INLYTA [Suspect]
     Active Substance: AXITINIB
     Indication: Bone neoplasm
     Dosage: 5 MG, 2X/DAY
     Route: 048
     Dates: start: 20201001
  2. INLYTA [Suspect]
     Active Substance: AXITINIB
     Indication: Illness
  3. INLYTA [Suspect]
     Active Substance: AXITINIB
     Indication: Renal cancer

REACTIONS (1)
  - Rash [Unknown]
